FAERS Safety Report 5322790-6 (Version None)
Quarter: 2007Q2

REPORT INFORMATION
  Report Type: 
  Country: None (occurrence: None)
  Receive Date: 20070511
  Receipt Date: 20070425
  Transmission Date: 20071010
  Serious: Yes (Death, Hospitalization)
  Sender: FDA-Public Use
  Company Number: JP-BOEHRINGER INGELHEIM PHARMACEUTICALS, INC.-2007-BP-05303YA

PATIENT
  Age: 81 Year
  Sex: Male

DRUGS (3)
  1. HARNAL (TAMSULOSIN) ORODISPERSABLE CR [Suspect]
     Indication: BENIGN PROSTATIC HYPERPLASIA
     Route: 048
  2. QUETIAPINE FUMARATE [Suspect]
     Route: 048
  3. ANTI-PARKINSON AGENTS [Concomitant]

REACTIONS (2)
  - NEUROLEPTIC MALIGNANT SYNDROME [None]
  - PNEUMONIA ASPIRATION [None]
